FAERS Safety Report 6504609-0 (Version None)
Quarter: 2009Q4

REPORT INFORMATION
  Report Type: 
  Country: None (occurrence: None)
  Receive Date: 20091215
  Receipt Date: 20091204
  Transmission Date: 20100525
  Serious: Yes (Death, Hospitalization)
  Sender: FDA-Public Use
  Company Number: 2009AC000363

PATIENT
  Age: 10 Year
  Sex: Male

DRUGS (15)
  1. DIGOXIN [Suspect]
     Dosage: 60 MCG; DAILY; PO
     Route: 048
     Dates: start: 20070801
  2. EPINEPHRINE [Concomitant]
  3. ATROPINE [Concomitant]
  4. VASOPRESSIN [Concomitant]
  5. BICARBONATE [Concomitant]
  6. CALCIUM [Concomitant]
  7. LASIX [Concomitant]
  8. ASPIRIN [Concomitant]
  9. ENALAPRIL [Concomitant]
  10. DESONIDE [Concomitant]
  11. ASPIRIN [Concomitant]
  12. LASIX [Concomitant]
  13. CAPTOPRIL [Concomitant]
  14. COUMADIN [Concomitant]
  15. HEPARIN [Concomitant]

REACTIONS (17)
  - ANHEDONIA [None]
  - ATELECTASIS [None]
  - BRADYCARDIA [None]
  - CARDIAC DISORDER [None]
  - COAGULOPATHY [None]
  - ECONOMIC PROBLEM [None]
  - EMOTIONAL DISORDER [None]
  - FACE OEDEMA [None]
  - HYPERKALAEMIA [None]
  - HYPONATRAEMIA [None]
  - HYPOXIA [None]
  - INJURY [None]
  - PAIN [None]
  - RENAL FAILURE [None]
  - SOCIAL PROBLEM [None]
  - THROMBOSIS [None]
  - VENTRICULAR HYPOPLASIA [None]
